FAERS Safety Report 18385406 (Version 2)
Quarter: 2025Q3

REPORT INFORMATION
  Report Type: Spontaneous
  Country: EU (occurrence: EU)
  Receive Date: 20201015
  Receipt Date: 20250704
  Transmission Date: 20251020
  Serious: Yes (Hospitalization)
  Sender: TEVA
  Company Number: None

PATIENT
  Age: 20 Year
  Sex: Female

DRUGS (4)
  1. DIAZEPAM [Suspect]
     Active Substance: DIAZEPAM
     Indication: Product used for unknown indication
     Route: 065
     Dates: start: 20200906, end: 20200906
  2. PROPIOMAZINE [Suspect]
     Active Substance: PROPIOMAZINE
     Indication: Product used for unknown indication
     Route: 065
     Dates: start: 20200906, end: 20200906
  3. LAMOTRIGINE [Suspect]
     Active Substance: LAMOTRIGINE
     Indication: Product used for unknown indication
     Route: 065
     Dates: start: 20200906, end: 20200906
  4. MELATONIN [Suspect]
     Active Substance: MELATONIN
     Indication: Product used for unknown indication
     Route: 065
     Dates: start: 20200906, end: 20200906

REACTIONS (4)
  - Depressed level of consciousness [Recovering/Resolving]
  - Toxicity to various agents [Recovering/Resolving]
  - Suicide attempt [Recovering/Resolving]
  - Intentional overdose [Recovering/Resolving]

NARRATIVE: CASE EVENT DATE: 20200906
